FAERS Safety Report 7879657-9 (Version None)
Quarter: 2011Q4

REPORT INFORMATION
  Report Type: 
  Country: None (occurrence: None)
  Receive Date: 20111101
  Receipt Date: 20111019
  Transmission Date: 20120403
  Serious: Yes (Hospitalization)
  Sender: FDA-Public Use
  Company Number: JP-GLAXOSMITHKLINE-B0711755A

PATIENT
  Age: 69 Year
  Sex: Female
  Weight: 41 kg

DRUGS (24)
  1. FUROSEMIDE [Concomitant]
     Indication: INAPPROPRIATE ANTIDIURETIC HORMONE SECRETION
     Route: 048
     Dates: start: 20100816, end: 20101217
  2. PYDOXAL [Concomitant]
     Indication: PROPHYLAXIS
     Route: 048
     Dates: start: 20100813, end: 20100817
  3. LANSOPRAZOLE [Concomitant]
     Indication: PROPHYLAXIS
     Route: 048
     Dates: start: 20100821
  4. OXINORM [Concomitant]
     Indication: CANCER PAIN
     Route: 048
     Dates: start: 20101114, end: 20101210
  5. AZUNOL [Concomitant]
     Indication: METASTASES TO SKIN
     Route: 061
     Dates: start: 20110421
  6. XELODA [Suspect]
     Dosage: 1800MG PER DAY
     Route: 048
     Dates: start: 20100907, end: 20101014
  7. ZOMETA [Concomitant]
     Indication: METASTASES TO BONE
     Route: 042
     Dates: start: 20060727
  8. NOVAMINE [Concomitant]
     Indication: PROPHYLAXIS
     Route: 048
     Dates: start: 20101203, end: 20101210
  9. MARZULENE-S [Concomitant]
     Indication: PROPHYLAXIS
     Route: 048
     Dates: start: 20100813
  10. MAGNESIUM SULFATE [Concomitant]
     Indication: CONSTIPATION PROPHYLAXIS
     Route: 048
     Dates: start: 20101203
  11. CELEBREX [Concomitant]
     Indication: CANCER PAIN
     Route: 048
     Dates: start: 20101217, end: 20101219
  12. OXYCONTIN [Suspect]
     Indication: CANCER PAIN
     Route: 048
     Dates: start: 20101203, end: 20101210
  13. ATELEC [Concomitant]
     Indication: HYPERTENSION
     Route: 048
     Dates: end: 20100817
  14. LOXONIN [Concomitant]
     Indication: CANCER PAIN
     Route: 048
     Dates: start: 20100813, end: 20101217
  15. XELODA [Suspect]
     Dosage: 2400MG PER DAY
     Route: 048
     Dates: start: 20100813, end: 20100815
  16. XELODA [Suspect]
     Dosage: 1800MG PER DAY
     Route: 048
     Dates: start: 20110205, end: 20110311
  17. DEMECLOCYCLINE HCL [Concomitant]
     Indication: INAPPROPRIATE ANTIDIURETIC HORMONE SECRETION
     Route: 048
     Dates: end: 20100817
  18. PYDOXAL [Concomitant]
     Route: 048
     Dates: start: 20100907, end: 20100920
  19. LOXOPROFEN [Concomitant]
     Indication: CANCER PAIN
     Route: 048
     Dates: start: 20101220
  20. TYKERB [Suspect]
     Indication: BREAST CANCER
     Dosage: 1250MG PER DAY
     Route: 048
     Dates: start: 20100813, end: 20101219
  21. TYKERB [Suspect]
     Dosage: 1250MG PER DAY
     Route: 048
     Dates: start: 20101222
  22. XELODA [Suspect]
     Dosage: 1800MG PER DAY
     Route: 048
     Dates: start: 20101029, end: 20101202
  23. LANSOPRAZOLE [Concomitant]
     Indication: PROPHYLAXIS
     Route: 048
     Dates: start: 20100813, end: 20100820
  24. ACETAMINOPHEN [Concomitant]
     Indication: CANCER PAIN
     Route: 048
     Dates: start: 20110111

REACTIONS (9)
  - VOMITING [None]
  - HYPOGLYCAEMIA [None]
  - NAUSEA [None]
  - HYPONATRAEMIA [None]
  - HAEMOGLOBIN DECREASED [None]
  - ALTERED STATE OF CONSCIOUSNESS [None]
  - DECREASED APPETITE [None]
  - MALAISE [None]
  - PYREXIA [None]
